FAERS Safety Report 9387058 (Version 1)
Quarter: 2013Q3

REPORT INFORMATION
  Report Type: Spontaneous
  Country: US (occurrence: None)
  Receive Date: 20130703
  Receipt Date: 20130703
  Transmission Date: 20140515
  Serious: Yes (Other)
  Sender: FDA-Public Use
  Company Number: None

PATIENT
  Age: 49 Year
  Sex: Male
  Weight: 68.04 kg

DRUGS (1)
  1. TOPIRAMATE [Suspect]
     Indication: MIGRAINE PROPHYLAXIS
     Dosage: 1 TABLET ONCE/DAY PO
     Route: 048
     Dates: start: 20130525, end: 20130630

REACTIONS (5)
  - Product quality issue [None]
  - Product substitution issue [None]
  - Product quality issue [None]
  - Migraine [None]
  - Drug ineffective [None]
